FAERS Safety Report 19443243 (Version 2)
Quarter: 2021Q4

REPORT INFORMATION
  Report Type: Spontaneous
  Country: CA (occurrence: CA)
  Receive Date: 20210621
  Receipt Date: 20211006
  Transmission Date: 20220303
  Serious: Yes (Hospitalization, Other)
  Sender: FDA-Public Use
  Company Number: CA-SA-SAC20210616000290

PATIENT

DRUGS (4)
  1. ALEMTUZUMAB [Suspect]
     Active Substance: ALEMTUZUMAB
     Indication: Relapsing-remitting multiple sclerosis
     Dosage: 12 MG, QD
     Route: 064
  2. ACYCLOVIR [Suspect]
     Active Substance: ACYCLOVIR
     Indication: Premedication
     Dosage: 200 MG, BID
     Route: 064
  3. METHYLPREDNISOLONE SODIUM SUCCINATE [Suspect]
     Active Substance: METHYLPREDNISOLONE SODIUM SUCCINATE
     Indication: Premedication
     Dosage: 1 G
     Route: 064
  4. VITAMIN B12 [Concomitant]
     Active Substance: CYANOCOBALAMIN
     Indication: Fatigue
     Route: 064

REACTIONS (23)
  - Foetal exposure during pregnancy [Not Recovered/Not Resolved]
  - Goitre [Not Recovered/Not Resolved]
  - Thyroid function test abnormal [Not Recovered/Not Resolved]
  - Underweight [Not Recovered/Not Resolved]
  - Bradycardia [Unknown]
  - Abdominal discomfort [Unknown]
  - Asthenia [Unknown]
  - Diarrhoea [Unknown]
  - Dysgeusia [Unknown]
  - Gastrointestinal sounds abnormal [Unknown]
  - Headache [Unknown]
  - Hyperhidrosis [Unknown]
  - Muscle tightness [Unknown]
  - Nausea [Unknown]
  - Oral candidiasis [Unknown]
  - Pharyngitis [Unknown]
  - Platelet count decreased [Unknown]
  - Pruritus [Unknown]
  - Sensory disturbance [Unknown]
  - Tongue discolouration [Unknown]
  - Tremor [Unknown]
  - Urticaria [Unknown]
  - Vein disorder [Unknown]
